FAERS Safety Report 7739383 (Version 5)
Quarter: 2013Q3

REPORT INFORMATION
  Report Type: Report from Study
  Country: CA (occurrence: CA)
  Receive Date: 20101224
  Receipt Date: 20130910
  Transmission Date: 20140515
  Serious: Yes (Hospitalization, Other)
  Sender: FDA-Public Use
  Company Number: PHHY2010CA85027

PATIENT
  Age: 84 Year
  Sex: Female
  Weight: 58.1 kg

DRUGS (15)
  1. ACLASTA/ZOLEDRONATE [Suspect]
     Dosage: 5 MG/100 ML, ONCE A YEAR
     Route: 042
     Dates: start: 20100204
  2. KADIAN [Suspect]
     Dosage: 10 MG, UNK
     Route: 048
  3. CALCIUM [Concomitant]
  4. VITAMIN D [Concomitant]
  5. SYNTHROID [Concomitant]
  6. PANTOLOC [Concomitant]
  7. ZOCOR [Concomitant]
  8. LOPRESOR [Concomitant]
  9. NORVASC [Concomitant]
  10. ASAPHEN [Concomitant]
  11. EVISTA [Concomitant]
     Indication: BACK PAIN
  12. COLACE [Concomitant]
  13. DILANTIN                                /CAN/ [Concomitant]
  14. ACETAMINOPHEN [Concomitant]
  15. LYRICA [Concomitant]

REACTIONS (12)
  - Musculoskeletal pain [Unknown]
  - Pain in extremity [Recovered/Resolved]
  - Pain [Unknown]
  - Infection [Recovered/Resolved]
  - Heart rate increased [Recovered/Resolved]
  - General physical health deterioration [Recovered/Resolved]
  - Bone pain [Recovered/Resolved]
  - Pyrexia [Recovered/Resolved]
  - Spinal osteoarthritis [Recovered/Resolved]
  - Back pain [Recovered/Resolved]
  - Bone density decreased [Recovered/Resolved]
  - Neck pain [Recovered/Resolved]
